FAERS Safety Report 6915865-9 (Version None)
Quarter: 2010Q3

REPORT INFORMATION
  Report Type: 
  Country: None (occurrence: None)
  Receive Date: 20100805
  Receipt Date: 20100723
  Transmission Date: 20110219
  Serious: Yes (Hospitalization, Disabling, Other)
  Sender: FDA-Public Use
  Company Number: KY10-124-AE

PATIENT
  Age: 71 Year
  Sex: Female
  Weight: 61.6892 kg

DRUGS (3)
  1. ACETAMINOPHEN [Suspect]
     Indication: HEADACHE
     Dosage: 2 TABLETS, PRN, ORAL
     Route: 048
     Dates: start: 20100203
  2. GEODON [Concomitant]
  3. LEVOTHROID [Concomitant]

REACTIONS (10)
  - ABASIA [None]
  - ALOPECIA [None]
  - BALANCE DISORDER [None]
  - DEAFNESS [None]
  - DYSSTASIA [None]
  - HEADACHE [None]
  - NECK PAIN [None]
  - NERVE INJURY [None]
  - PRURITUS [None]
  - RASH [None]
